FAERS Safety Report 18823743 (Version 1)
Quarter: 2021Q1

REPORT INFORMATION
  Report Type: Spontaneous
  Country: US (occurrence: US)
  Receive Date: 20210202
  Receipt Date: 20210202
  Transmission Date: 20210419
  Serious: No
  Sender: FDA-Public Use
  Company Number: US-NEOS THERAPEUTICS, LP-2020NEO00020

PATIENT
  Age: 19 Year
  Sex: Male

DRUGS (1)
  1. ADZENYS XR?ODT [Suspect]
     Active Substance: AMPHETAMINE
     Dosage: UNK
     Dates: start: 202003, end: 202003

REACTIONS (4)
  - Skin discolouration [Recovering/Resolving]
  - Sensory loss [Recovering/Resolving]
  - Raynaud^s phenomenon [Recovering/Resolving]
  - Pain in extremity [Recovering/Resolving]

NARRATIVE: CASE EVENT DATE: 20200325
